FAERS Safety Report 8954315 (Version 1)
Quarter: 2012Q4

REPORT INFORMATION
  Report Type: 
  Country: US (occurrence: US)
  Receive Date: 20121210
  Receipt Date: 20121210
  Transmission Date: 20130627
  Serious: Yes (Hospitalization)
  Sender: FDA-Public Use
  Company Number: US-MERCK-1212USA002552

PATIENT
  Age: 62 Year
  Sex: Male

DRUGS (3)
  1. SAPHRIS [Suspect]
     Indication: BIPOLAR I DISORDER
     Dosage: 10 mg, bid
     Route: 060
     Dates: start: 201211, end: 20121204
  2. LITHIUM [Concomitant]
  3. GEODON [Suspect]
     Dosage: UNK

REACTIONS (3)
  - Akathisia [Unknown]
  - Mania [Unknown]
  - Psychiatric decompensation [Unknown]
